FAERS Safety Report 9465327 (Version 1)
Quarter: 2013Q3

REPORT INFORMATION
  Report Type: Spontaneous
  Country: US (occurrence: US)
  Receive Date: 20130820
  Receipt Date: 20130820
  Transmission Date: 20140515
  Serious: No
  Sender: FDA-Public Use
  Company Number: US-009507513-1308USA006958

PATIENT
  Age: 69 Year
  Sex: Female

DRUGS (2)
  1. PROPECIA [Suspect]
     Indication: ALOPECIA
     Dosage: 1 MG, QD
     Route: 048
     Dates: start: 20130723, end: 2013
  2. PROPECIA [Suspect]
     Dosage: 1 MG, QD
     Route: 048
     Dates: start: 2013

REACTIONS (3)
  - Nightmare [Recovered/Resolved]
  - Nightmare [Not Recovered/Not Resolved]
  - Drug administration error [Unknown]
